FAERS Safety Report 23597271 (Version 1)
Quarter: 2024Q1

REPORT INFORMATION
  Report Type: Spontaneous
  Country: BR (occurrence: BR)
  Receive Date: 20240305
  Receipt Date: 20240305
  Transmission Date: 20240410
  Serious: Yes (Other)
  Sender: FDA-Public Use
  Company Number: BR-002147023-NVSC2024BR045502

PATIENT
  Sex: Male

DRUGS (2)
  1. TRILEPTAL [Suspect]
     Active Substance: OXCARBAZEPINE
     Indication: Epilepsy
     Dosage: 60 MILLIGRAM PER MILLILITRE, BID (2 TIMES A DAY, THE FIRST AT 8:30 A.M. AND THE SECOND AT 8:30 P.M)
     Route: 065
     Dates: start: 201912
  2. TRILEPTAL [Suspect]
     Active Substance: OXCARBAZEPINE
     Dosage: 60 MILLIGRAM PER MILLILITRE (2 TIMES A DAY, THE FIRST AT 8:30 A.M. AND THE SECOND AT 8:30 P.M)
     Route: 065

REACTIONS (9)
  - Epilepsy [Not Recovered/Not Resolved]
  - Syncope [Not Recovered/Not Resolved]
  - Blood test abnormal [Not Recovered/Not Resolved]
  - Dysarthria [Not Recovered/Not Resolved]
  - Vision blurred [Not Recovered/Not Resolved]
  - Ocular discomfort [Not Recovered/Not Resolved]
  - Abdominal pain [Not Recovered/Not Resolved]
  - Nausea [Not Recovered/Not Resolved]
  - Expired product administered [Not Recovered/Not Resolved]
